FAERS Safety Report 5308470-1 (Version None)
Quarter: 2007Q2

REPORT INFORMATION
  Report Type: 
  Country: None (occurrence: None)
  Receive Date: 20070426
  Receipt Date: 20070421
  Transmission Date: 20071010
  Serious: Yes (Other)
  Sender: FDA-Public Use
  Company Number: SA-AVENTIS-200713542GDDC

PATIENT
  Age: 13 Year
  Sex: Male
  Weight: 72 kg

DRUGS (3)
  1. INSULIN GLARGINE [Suspect]
     Indication: DIABETES MELLITUS INSULIN-DEPENDENT
     Route: 058
     Dates: start: 20070420, end: 20070421
  2. OPTIPEN (INSULIN PUMP) [Suspect]
  3. NOVORAPID [Concomitant]
     Dosage: FREQUENCY: BEFORE MEALS
     Route: 058

REACTIONS (1)
  - COMA [None]
